FAERS Safety Report 18004649 (Version 1)
Quarter: 2020Q3

REPORT INFORMATION
  Report Type: Spontaneous
  Country: US (occurrence: US)
  Receive Date: 20200709
  Receipt Date: 20200709
  Transmission Date: 20201103
  Serious: No
  Sender: FDA-Public Use
  Company Number: None

PATIENT

DRUGS (2)
  1. METFORMIN HCL [Suspect]
     Active Substance: METFORMIN HYDROCHLORIDE
     Route: 048
  2. GABAPENTIN. [Suspect]
     Active Substance: GABAPENTIN
     Route: 048

REACTIONS (7)
  - Product dose omission issue [None]
  - Adverse drug reaction [None]
  - Product appearance confusion [None]
  - Extra dose administered [None]
  - Pain [None]
  - Product dispensing error [None]
  - Device dispensing error [None]
